FAERS Safety Report 14350979 (Version 1)
Quarter: 2018Q1

REPORT INFORMATION
  Report Type: Spontaneous
  Country: FR (occurrence: FR)
  Receive Date: 20180104
  Receipt Date: 20180104
  Transmission Date: 20180509
  Serious: Yes (Hospitalization)
  Sender: FDA-Public Use
  Company Number: FR-PFIZER INC-2017552261

PATIENT
  Age: 64 Year
  Sex: Male
  Weight: 86 kg

DRUGS (9)
  1. METFORMINE [Concomitant]
     Active Substance: METFORMIN HYDROCHLORIDE
     Indication: INSULIN-REQUIRING TYPE 2 DIABETES MELLITUS
     Dosage: 850 MG, 1X/DAY
     Route: 048
  2. LANTUS [Concomitant]
     Active Substance: INSULIN GLARGINE
     Indication: INSULIN-REQUIRING TYPE 2 DIABETES MELLITUS
     Dosage: 62 IU, 1X/DAY
     Route: 058
  3. EXFORGE [Concomitant]
     Active Substance: AMLODIPINE BESYLATE\VALSARTAN
     Indication: HYPERTENSION
     Dosage: 10 MG, 1X/DAY
     Route: 048
  4. OMEPRAZOLE. [Concomitant]
     Active Substance: OMEPRAZOLE
     Indication: PROPHYLAXIS AGAINST GASTROINTESTINAL ULCER
     Dosage: 20 MG, 1X/DAY
     Route: 048
  5. NEURONTIN [Concomitant]
     Active Substance: GABAPENTIN
     Indication: POST STROKE EPILEPSY
     Dosage: 800 MG, 1X/DAY
     Route: 048
  6. COUMADINE [Suspect]
     Active Substance: WARFARIN SODIUM
     Indication: THROMBOSIS PROPHYLAXIS
     Dosage: 2 MG, UNK
     Route: 048
     Dates: start: 20170411, end: 20171109
  7. DEPAKINE /00228501/ [Concomitant]
     Active Substance: VALPROIC ACID
     Indication: POST STROKE EPILEPSY
     Dosage: 500 MG, 1X/DAY
     Route: 048
  8. TAHOR [Suspect]
     Active Substance: ATORVASTATIN CALCIUM
     Indication: HYPERCHOLESTEROLAEMIA
     Dosage: 20 MG, 1X/DAY
     Route: 048
  9. DOXYCYCLINE. [Concomitant]
     Active Substance: DOXYCYCLINE
     Dosage: 100 MG, 1X/DAY
     Route: 048

REACTIONS (2)
  - Rectal haemorrhage [Recovered/Resolved]
  - Hepatic haematoma [Recovering/Resolving]

NARRATIVE: CASE EVENT DATE: 20171108
